FAERS Safety Report 16290695 (Version 5)
Quarter: 2019Q2

REPORT INFORMATION
  Report Type: Spontaneous
  Country: US (occurrence: US)
  Receive Date: 20190509
  Receipt Date: 20190522
  Transmission Date: 20190711
  Serious: Yes (Other)
  Sender: FDA-Public Use
  Company Number: US-PFIZER INC-2019194611

PATIENT
  Age: 86 Year
  Sex: Female

DRUGS (18)
  1. AMIODARONE HCL [Suspect]
     Active Substance: AMIODARONE HYDROCHLORIDE
     Indication: NORMOCYTIC ANAEMIA
  2. APIXABAN [Concomitant]
     Active Substance: APIXABAN
     Indication: CHRONIC KIDNEY DISEASE
  3. AMIODARONE HCL [Suspect]
     Active Substance: AMIODARONE HYDROCHLORIDE
     Indication: ATRIAL FIBRILLATION
     Dosage: UNK
  4. APIXABAN [Concomitant]
     Active Substance: APIXABAN
     Indication: ATRIAL FIBRILLATION
     Dosage: UNK
  5. DILTIAZEM. [Concomitant]
     Active Substance: DILTIAZEM
     Indication: CHRONIC KIDNEY DISEASE
  6. ACETYLSALICYLIC ACID [Concomitant]
     Active Substance: ASPIRIN
     Indication: NORMOCYTIC ANAEMIA
  7. DILTIAZEM. [Concomitant]
     Active Substance: DILTIAZEM
     Indication: NORMOCYTIC ANAEMIA
  8. MIDODRINE [Concomitant]
     Active Substance: MIDODRINE
     Indication: NORMOCYTIC ANAEMIA
  9. APIXABAN [Concomitant]
     Active Substance: APIXABAN
     Indication: NORMOCYTIC ANAEMIA
  10. DILTIAZEM. [Concomitant]
     Active Substance: DILTIAZEM
     Indication: ATRIAL FIBRILLATION
     Dosage: UNK
  11. ACETYLSALICYLIC ACID [Concomitant]
     Active Substance: ASPIRIN
     Indication: ATRIAL FIBRILLATION
     Dosage: UNK
  12. BUMETANIDE. [Concomitant]
     Active Substance: BUMETANIDE
     Indication: ATRIAL FIBRILLATION
     Dosage: UNK
  13. BUMETANIDE. [Concomitant]
     Active Substance: BUMETANIDE
     Indication: NORMOCYTIC ANAEMIA
  14. MIDODRINE [Concomitant]
     Active Substance: MIDODRINE
     Indication: CHRONIC KIDNEY DISEASE
  15. AMIODARONE HCL [Suspect]
     Active Substance: AMIODARONE HYDROCHLORIDE
     Indication: CHRONIC KIDNEY DISEASE
  16. BUMETANIDE. [Concomitant]
     Active Substance: BUMETANIDE
     Indication: CHRONIC KIDNEY DISEASE
  17. ACETYLSALICYLIC ACID [Concomitant]
     Active Substance: ASPIRIN
     Indication: CHRONIC KIDNEY DISEASE
  18. MIDODRINE [Concomitant]
     Active Substance: MIDODRINE
     Indication: ATRIAL FIBRILLATION
     Dosage: UNK

REACTIONS (4)
  - Toxicity to various agents [Recovered/Resolved]
  - Hepatic steatosis [Recovered/Resolved]
  - Iodine overload [Recovered/Resolved]
  - Cholelithiasis [Recovered/Resolved]
